FAERS Safety Report 22228599 (Version 1)
Quarter: 2023Q2

REPORT INFORMATION
  Report Type: Spontaneous
  Country: US (occurrence: None)
  Receive Date: 20230418
  Receipt Date: 20230418
  Transmission Date: 20230722
  Serious: No
  Sender: FDA-Public Use
  Company Number: None

PATIENT
  Age: 41 Year
  Sex: Female

DRUGS (1)
  1. NASACORT ALLERGY 24HR [Suspect]
     Active Substance: TRIAMCINOLONE ACETONIDE
     Indication: Multiple allergies
     Dosage: OTHER QUANTITY : 2 SPRAY(S);?FREQUENCY : DAILY;?
     Route: 055
     Dates: start: 20230316, end: 20230417

REACTIONS (3)
  - Therapeutic response decreased [None]
  - Oropharyngeal pain [None]
  - Ear pain [None]

NARRATIVE: CASE EVENT DATE: 20230417
